FAERS Safety Report 7078625-7 (Version None)
Quarter: 2010Q4

REPORT INFORMATION
  Report Type: 
  Country: None (occurrence: None)
  Receive Date: 20101102
  Receipt Date: 20101021
  Transmission Date: 20110411
  Serious: Yes (Hospitalization)
  Sender: FDA-Public Use
  Company Number: ES-ELI_LILLY_AND_COMPANY-ES201010004897

PATIENT
  Sex: Female
  Weight: 85 kg

DRUGS (7)
  1. FORTEO [Suspect]
     Indication: OSTEOPOROSIS
     Dosage: 20 UG, DAILY (1/D)
     Route: 058
     Dates: start: 20091018
  2. ATARAX [Concomitant]
     Indication: INSOMNIA
     Dosage: UNK, EACH EVENING
     Route: 048
  3. METFORMIN HCL [Concomitant]
     Indication: DIABETES MELLITUS
     Dosage: UNK, EACH EVENING
     Route: 048
  4. AMARYL [Concomitant]
     Indication: DIABETES MELLITUS
     Dosage: 2 MG, 1.5 AT LUNCHTIME
     Route: 050
  5. MANIDON [Concomitant]
     Indication: ANGINA PECTORIS
     Dosage: 120 D/F, EACH MORNING
     Route: 048
  6. PLAVIX [Concomitant]
     Indication: ANGINA PECTORIS
     Dosage: UNK, 1 AT LUNCH TIME
     Route: 048
  7. NEXIUM [Concomitant]
     Indication: HIATUS HERNIA
     Dosage: UNK, EACH MORNING
     Route: 048

REACTIONS (1)
  - GALLBLADDER DISORDER [None]
